FAERS Safety Report 13824430 (Version 2)
Quarter: 2017Q4

REPORT INFORMATION
  Report Type: Report from Study
  Country: US (occurrence: US)
  Receive Date: 20170802
  Receipt Date: 20171010
  Transmission Date: 20180320
  Serious: No
  Sender: FDA-Public Use
  Company Number: PHEH2017US024015

PATIENT
  Sex: Female

DRUGS (1)
  1. ILARIS [Suspect]
     Active Substance: CANAKINUMAB
     Indication: PRODUCT USED FOR UNKNOWN INDICATION
     Dosage: 150 MG, QMO
     Route: 058
     Dates: start: 201703

REACTIONS (6)
  - Mobility decreased [Unknown]
  - Injection site pain [Unknown]
  - Nasopharyngitis [Unknown]
  - Condition aggravated [Unknown]
  - Hypersomnia [Unknown]
  - Product formulation issue [Unknown]
